FAERS Safety Report 13271706 (Version 1)
Quarter: 2017Q1

REPORT INFORMATION
  Report Type: Not Available
  Country: DE (occurrence: DE)
  Receive Date: 20170227
  Receipt Date: 20170227
  Transmission Date: 20170428
  Serious: Yes (Other)
  Sender: FDA-Public Use
  Company Number: DE--2017-DE-000001

PATIENT
  Age: 74 Year
  Sex: Male
  Weight: 76 kg

DRUGS (2)
  1. METRONIDAZOLE BRAND UNSPECIFIED (VIVIMED) [Suspect]
     Active Substance: METRONIDAZOLE
     Indication: CLOSTRIDIUM DIFFICILE COLITIS
     Dosage: 400 MG THREE TIMES A DAY
     Route: 048
  2. CEFAZOLIN [Concomitant]
     Active Substance: CEFAZOLIN
     Dosage: UNKNOWN

REACTIONS (2)
  - Hypertensive crisis [Recovered/Resolved]
  - Aphasia [Recovered/Resolved]
